FAERS Safety Report 23269989 (Version 4)
Quarter: 2024Q1

REPORT INFORMATION
  Report Type: Spontaneous
  Country: US (occurrence: US)
  Receive Date: 20231207
  Receipt Date: 20240226
  Transmission Date: 20240410
  Serious: No
  Sender: FDA-Public Use
  Company Number: US-SA-SAC20231130000858

PATIENT
  Age: 21 Year
  Sex: Female

DRUGS (2)
  1. DUPIXENT [Suspect]
     Active Substance: DUPILUMAB
     Indication: Asthma
     Dosage: 600 MG 1X
     Route: 058
     Dates: start: 20230831, end: 20230831
  2. DUPIXENT [Suspect]
     Active Substance: DUPILUMAB
     Dosage: 300MG QOW
     Route: 058
     Dates: start: 2023

REACTIONS (10)
  - Injection site mass [Unknown]
  - Injection site pain [Unknown]
  - Lung disorder [Not Recovered/Not Resolved]
  - Influenza like illness [Recovered/Resolved]
  - COVID-19 [Unknown]
  - Illness [Recovered/Resolved]
  - Hypersensitivity [Unknown]
  - Asthma [Unknown]
  - Drug effect less than expected [Unknown]
  - Appendicectomy [Unknown]

NARRATIVE: CASE EVENT DATE: 20231125
